FAERS Safety Report 20913924 (Version 4)
Quarter: 2022Q4

REPORT INFORMATION
  Report Type: Report from Study
  Country: US (occurrence: None)
  Receive Date: 20220604
  Receipt Date: 20221014
  Transmission Date: 20230112
  Serious: Yes (Hospitalization)
  Sender: FDA-Public Use
  Company Number: US-ROCHE-3110432

PATIENT
  Age: 67 Year
  Sex: Female
  Weight: 61.5 kg

DRUGS (25)
  1. RITUXIMAB [Suspect]
     Active Substance: RITUXIMAB
     Indication: Follicular lymphoma stage IV
     Dosage: ON 13/MAY/2022, 18/FEB/2022 LAST DOSE OF RITUXIMAB PRIOR TO EVENT
     Route: 041
     Dates: start: 20220114, end: 20220211
  2. RITUXIMAB [Suspect]
     Active Substance: RITUXIMAB
     Route: 041
     Dates: start: 20220218
  3. EPCORITAMAB [Suspect]
     Active Substance: EPCORITAMAB
     Indication: Follicular lymphoma stage IV
     Dosage: THE INTERMEDIATE DOSE OF 0.8 MG ON 21/JAN/2022, AND THE FULL DOSE OF 48 MG ON 04/FEB/2022, LATEST DO
     Route: 058
     Dates: start: 20220114, end: 20220114
  4. EPCORITAMAB [Suspect]
     Active Substance: EPCORITAMAB
     Route: 058
     Dates: start: 20220121, end: 20220121
  5. EPCORITAMAB [Suspect]
     Active Substance: EPCORITAMAB
     Route: 058
     Dates: start: 20220204, end: 20220311
  6. EPCORITAMAB [Suspect]
     Active Substance: EPCORITAMAB
     Route: 058
     Dates: start: 20220318
  7. LENALIDOMIDE [Suspect]
     Active Substance: LENALIDOMIDE
     Indication: Follicular lymphoma stage IV
     Route: 048
     Dates: start: 20220114, end: 20220127
  8. LENALIDOMIDE [Suspect]
     Active Substance: LENALIDOMIDE
     Route: 048
     Dates: start: 20220129, end: 20220202
  9. LENALIDOMIDE [Suspect]
     Active Substance: LENALIDOMIDE
     Route: 048
     Dates: start: 20220218, end: 20220310
  10. LENALIDOMIDE [Suspect]
     Active Substance: LENALIDOMIDE
     Route: 048
     Dates: start: 20220318, end: 20220331
  11. LENALIDOMIDE [Suspect]
     Active Substance: LENALIDOMIDE
     Route: 048
     Dates: start: 20220415, end: 20220430
  12. LENALIDOMIDE [Suspect]
     Active Substance: LENALIDOMIDE
     Route: 048
     Dates: start: 20220502, end: 20220505
  13. LENALIDOMIDE [Suspect]
     Active Substance: LENALIDOMIDE
     Route: 048
     Dates: start: 20220513, end: 20220517
  14. LENALIDOMIDE [Suspect]
     Active Substance: LENALIDOMIDE
     Route: 048
     Dates: start: 20220610, end: 20220622
  15. DIPHENHYDRAMINE [Concomitant]
     Active Substance: DIPHENHYDRAMINE
     Route: 042
     Dates: start: 20220513, end: 20220513
  16. ACETAMINOPHEN [Concomitant]
     Active Substance: ACETAMINOPHEN
     Route: 048
     Dates: start: 20220513, end: 20220513
  17. PREDNISONE [Concomitant]
     Active Substance: PREDNISONE
     Route: 048
     Dates: start: 20220114, end: 20220204
  18. ACYCLOVIR [Concomitant]
     Active Substance: ACYCLOVIR
     Dates: start: 20210112
  19. ALBUTEROL [Concomitant]
     Active Substance: ALBUTEROL
     Dates: start: 20220404
  20. ASPIRIN [Concomitant]
     Active Substance: ASPIRIN
  21. CLOBETASOL [Concomitant]
     Active Substance: CLOBETASOL
  22. DOCUSATE SODIUM [Concomitant]
     Active Substance: DOCUSATE SODIUM
  23. A-HYDROCORT [Concomitant]
     Active Substance: HYDROCORTISONE SODIUM SUCCINATE
  24. ONDANSETRON [Concomitant]
     Active Substance: ONDANSETRON
  25. XANAX [Concomitant]
     Active Substance: ALPRAZOLAM

REACTIONS (1)
  - COVID-19 pneumonia [Recovered/Resolved]

NARRATIVE: CASE EVENT DATE: 20220517
